FAERS Safety Report 9961290 (Version 1)
Quarter: 2014Q1

REPORT INFORMATION
  Report Type: Spontaneous
  Country: US (occurrence: US)
  Receive Date: 20140305
  Receipt Date: 20140305
  Transmission Date: 20141002
  Serious: No
  Sender: FDA-Public Use
  Company Number: US-BAYER-2014-033968

PATIENT
  Age: 40 Year
  Sex: Female

DRUGS (1)
  1. GADAVIST [Suspect]
     Indication: BREAST SCAN
     Dosage: 5 ML, ONCE
     Dates: start: 20140224, end: 20140224

REACTIONS (1)
  - Vomiting [None]
